FAERS Safety Report 20280292 (Version 1)
Quarter: 2022Q1

REPORT INFORMATION
  Report Type: Spontaneous
  Country: GB (occurrence: GB)
  Receive Date: 20220103
  Receipt Date: 20220103
  Transmission Date: 20220423
  Serious: Yes (Other)
  Sender: FDA-Public Use
  Company Number: GB-MYLANLABS-2021M1097582

PATIENT
  Age: 3 Decade
  Sex: Female

DRUGS (3)
  1. TACROLIMUS [Suspect]
     Active Substance: TACROLIMUS
     Indication: Product used for unknown indication
     Dosage: UNK
     Route: 065
  2. ECULIZUMAB [Suspect]
     Active Substance: ECULIZUMAB
     Indication: Thrombotic microangiopathy
     Dosage: 900 MILLIGRAM
     Route: 065
     Dates: start: 2018
  3. ECULIZUMAB [Suspect]
     Active Substance: ECULIZUMAB
     Indication: Disease recurrence
     Dosage: 1200 MILLIGRAM
     Route: 065
     Dates: start: 2018

REACTIONS (4)
  - Thrombotic microangiopathy [Unknown]
  - Disease recurrence [Unknown]
  - Foetal death [Recovered/Resolved]
  - Maternal exposure during pregnancy [Recovered/Resolved]

NARRATIVE: CASE EVENT DATE: 20180101
